FAERS Safety Report 5522927-X (Version None)
Quarter: 2007Q4

REPORT INFORMATION
  Report Type: 
  Country: None (occurrence: None)
  Receive Date: 20071116
  Receipt Date: 20071108
  Transmission Date: 20080405
  Serious: Yes (Other)
  Sender: FDA-Public Use
  Company Number: 235241K07USA

PATIENT
  Age: 60 Year
  Sex: Female
  Weight: 62.5964 kg

DRUGS (9)
  1. REBIF [Suspect]
     Indication: MULTIPLE SCLEROSIS
     Dosage: 44 MCG, 3 IN 1 WEEKS, SUBCUTANEOUS
     Route: 058
     Dates: start: 20060807
  2. NADOLOL [Concomitant]
  3. HYDRALAZINE HCL [Concomitant]
  4. CLONAZEPAM [Concomitant]
  5. METFORMIN (METFORMIN /00082701/) [Concomitant]
  6. AMILORIDE (AMILORIDE) [Concomitant]
  7. LEXAPRO [Concomitant]
  8. WELLBUTRIN [Concomitant]
  9. ASPIRIN [Concomitant]

REACTIONS (16)
  - EYE HAEMORRHAGE [None]
  - FALL [None]
  - HEAD INJURY [None]
  - HEADACHE [None]
  - INJECTION SITE ERYTHEMA [None]
  - JOINT SPRAIN [None]
  - LUNG NEOPLASM MALIGNANT [None]
  - NECK PAIN [None]
  - OPTIC NEURITIS [None]
  - PNEUMONIA [None]
  - SINUS POLYP [None]
  - SINUSITIS BACTERIAL [None]
  - SINUSITIS FUNGAL [None]
  - SQUAMOUS CELL CARCINOMA OF SKIN [None]
  - VOCAL CORD PARALYSIS [None]
  - VOCAL CORD POLYP [None]
